FAERS Safety Report 7492817-4 (Version None)
Quarter: 2011Q2

REPORT INFORMATION
  Report Type: 
  Country: None (occurrence: None)
  Receive Date: 20110513
  Receipt Date: 20110509
  Transmission Date: 20111010
  Serious: Yes (Other)
  Sender: FDA-Public Use
  Company Number: WAES 1105USA01391

PATIENT
  Age: 51 Year
  Sex: Female
  Weight: 119.7496 kg

DRUGS (6)
  1. FOSAMAX [Suspect]
     Indication: OSTEOPENIA
     Dates: start: 20080101
  2. COUMADIN [Concomitant]
  3. LYRICA [Concomitant]
  4. CHANTIX [Suspect]
     Dates: start: 20080101
  5. CHANTIX [Suspect]
     Dates: start: 20110101
  6. SYNTHROID [Concomitant]

REACTIONS (8)
  - DRUG LEVEL INCREASED [None]
  - MENTAL DISORDER [None]
  - DEPRESSION [None]
  - TRANSIENT ISCHAEMIC ATTACK [None]
  - SWOLLEN TONGUE [None]
  - FEAR [None]
  - CONDITION AGGRAVATED [None]
  - ALOPECIA [None]
